FAERS Safety Report 18004680 (Version 1)
Quarter: 2020Q3

REPORT INFORMATION
  Report Type: Spontaneous
  Country: US (occurrence: US)
  Receive Date: 20200709
  Receipt Date: 20200709
  Transmission Date: 20201103
  Serious: No
  Sender: FDA-Public Use
  Company Number: None

PATIENT
  Sex: Female

DRUGS (2)
  1. PROPRANOLOL [Suspect]
     Active Substance: PROPRANOLOL HYDROCHLORIDE
  2. PRAVASTATIN. [Suspect]
     Active Substance: PRAVASTATIN

REACTIONS (4)
  - Product dispensing error [None]
  - Dizziness [None]
  - Wrong product administered [None]
  - Pain in extremity [None]
